FAERS Safety Report 16811656 (Version 2)
Quarter: 2019Q4

REPORT INFORMATION
  Report Type: Report from Study
  Country: CA (occurrence: CA)
  Receive Date: 20190916
  Receipt Date: 20191127
  Transmission Date: 20200122
  Serious: Yes (Hospitalization, Other)
  Sender: FDA-Public Use
  Company Number: CA-JNJFOC-20190908461

PATIENT
  Age: 42 Year
  Sex: Male
  Weight: 65.77 kg

DRUGS (2)
  1. STELARA [Suspect]
     Active Substance: USTEKINUMAB
     Route: 042
  2. STELARA [Suspect]
     Active Substance: USTEKINUMAB
     Indication: CROHN^S DISEASE
     Dosage: STRENGTH = 90 MG
     Route: 058
     Dates: start: 20160926

REACTIONS (3)
  - Ileostomy [Recovered/Resolved]
  - Crohn^s disease [Unknown]
  - Proctectomy [Recovered/Resolved]

NARRATIVE: CASE EVENT DATE: 20190823
